FAERS Safety Report 22303503 (Version 3)
Quarter: 2023Q2

REPORT INFORMATION
  Report Type: Spontaneous
  Country: US (occurrence: US)
  Receive Date: 20230510
  Receipt Date: 20230621
  Transmission Date: 20230721
  Serious: Yes (Other)
  Sender: FDA-Public Use
  Company Number: US-BRISTOL-MYERS SQUIBB COMPANY-2023-065548

PATIENT
  Age: 71 Year
  Sex: Female
  Weight: 81.65 kg

DRUGS (2)
  1. REVLIMID [Suspect]
     Active Substance: LENALIDOMIDE
     Indication: Plasma cell myeloma
     Dosage: 2 WKS ON,1WK OFF?QD DAY 1 - 14 7 DAY OFF
     Route: 048
  2. REVLIMID [Suspect]
     Active Substance: LENALIDOMIDE
     Dosage: 14D ON 14D OFF
     Route: 048
     Dates: start: 20230401

REACTIONS (6)
  - Bone pain [Unknown]
  - Peripheral swelling [Unknown]
  - Off label use [Unknown]
  - Pneumonia [Unknown]
  - Thrombosis [Unknown]
  - Neutropenia [Unknown]
